FAERS Safety Report 24595608 (Version 2)
Quarter: 2025Q3

REPORT INFORMATION
  Report Type: Spontaneous
  Country: JP (occurrence: JP)
  Receive Date: 20241109
  Receipt Date: 20250810
  Transmission Date: 20251020
  Serious: Yes (Other)
  Sender: ALEXION PHARMACEUTICALS
  Company Number: JP-ASTRAZENECA-240114379_013120_P_1

PATIENT
  Age: 76 Year
  Sex: Male
  Weight: 68 kg

DRUGS (10)
  1. DURVALUMAB [Suspect]
     Active Substance: DURVALUMAB
     Indication: Hepatocellular carcinoma
     Dates: start: 20240325, end: 20240325
  2. TREMELIMUMAB [Suspect]
     Active Substance: TREMELIMUMAB
     Indication: Hepatocellular carcinoma
  3. NIFEDIPINE [Concomitant]
     Active Substance: NIFEDIPINE
  4. Silodosin od [Concomitant]
  5. Silodosin od [Concomitant]
  6. TOBRAMYCIN [Concomitant]
     Active Substance: TOBRAMYCIN
  7. TOBRAMYCIN [Concomitant]
     Active Substance: TOBRAMYCIN
  8. GLYCOSAMINOGLYCANS [Concomitant]
     Active Substance: GLYCOSAMINOGLYCANS
  9. GLYCOSAMINOGLYCANS [Concomitant]
     Active Substance: GLYCOSAMINOGLYCANS
  10. Topsym [Concomitant]

REACTIONS (2)
  - Immune-mediated enterocolitis [Recovered/Resolved]
  - Rash [Recovered/Resolved]

NARRATIVE: CASE EVENT DATE: 20240401
